FAERS Safety Report 7243221-5 (Version None)
Quarter: 2011Q1

REPORT INFORMATION
  Report Type: 
  Country: None (occurrence: None)
  Receive Date: 20110125
  Receipt Date: 20110110
  Transmission Date: 20110831
  Serious: Yes (Hospitalization, Other)
  Sender: FDA-Public Use
  Company Number: US-PFIZER INC-US-WYE-H17586310

PATIENT
  Sex: Female

DRUGS (2)
  1. PREMARIN [Suspect]
     Indication: HOT FLUSH
     Dosage: 1 DF, 1X/DAY
     Route: 048
     Dates: start: 19920101, end: 20050101
  2. PROVERA [Suspect]
     Indication: HOT FLUSH
     Dosage: 2.5 MG, 1X/DAY
     Route: 048
     Dates: start: 19920101, end: 20050101

REACTIONS (6)
  - WOUND INFECTION [None]
  - NOSOCOMIAL INFECTION [None]
  - WEIGHT INCREASED [None]
  - COLON CANCER METASTATIC [None]
  - COLONIC POLYP [None]
  - COLON NEOPLASM [None]
